FAERS Safety Report 5862436-1 (Version None)
Quarter: 2008Q3

REPORT INFORMATION
  Report Type: 
  Country: None (occurrence: None)
  Receive Date: 20080828
  Receipt Date: 20080818
  Transmission Date: 20090109
  Serious: Yes (Other)
  Sender: FDA-Public Use
  Company Number: ES-JNJFOC-20080801340

PATIENT
  Age: 12 Year
  Sex: Female
  Weight: 22 kg

DRUGS (3)
  1. REMICADE [Suspect]
     Route: 042
  2. REMICADE [Suspect]
     Indication: JUVENILE ARTHRITIS
     Route: 042
  3. GROWTH HORMONE [Suspect]
     Indication: JUVENILE ARTHRITIS

REACTIONS (3)
  - DRUG INEFFECTIVE [None]
  - HEADACHE [None]
  - INTRACRANIAL PRESSURE INCREASED [None]
